FAERS Safety Report 7625165-X (Version None)
Quarter: 2011Q3

REPORT INFORMATION
  Report Type: 
  Country: None (occurrence: None)
  Receive Date: 20110721
  Receipt Date: 20110707
  Transmission Date: 20111222
  Serious: Yes (Other)
  Sender: FDA-Public Use
  Company Number: US-UCBSA-036793

PATIENT
  Sex: Female

DRUGS (4)
  1. CIMZIA [Suspect]
     Route: 058
  2. PLAQUENIL [Concomitant]
  3. SULFASALIZINE [Concomitant]
  4. METHOTREXATE [Concomitant]

REACTIONS (6)
  - SINUSITIS [None]
  - DEPRESSION [None]
  - TEMPERATURE INTOLERANCE [None]
  - CONTUSION [None]
  - GASTROINTESTINAL DISORDER [None]
  - MALAISE [None]
